FAERS Safety Report 8365542-5 (Version None)
Quarter: 2012Q2

REPORT INFORMATION
  Report Type: 
  Country: None (occurrence: None)
  Receive Date: 20120516
  Receipt Date: 20120516
  Transmission Date: 20120825
  Serious: Yes (Other)
  Sender: FDA-Public Use
  Company Number: CR-PFIZER INC-2012116851

PATIENT
  Age: 80 Year
  Sex: Female

DRUGS (2)
  1. WARFARIN [Concomitant]
  2. LIPITOR [Suspect]
     Dosage: UNK
     Dates: end: 20120512

REACTIONS (1)
  - MYOSITIS [None]
